FAERS Safety Report 15229731 (Version 1)
Quarter: 2018Q3

REPORT INFORMATION
  Report Type: Spontaneous
  Country: US (occurrence: US)
  Receive Date: 20180802
  Receipt Date: 20180802
  Transmission Date: 20181010
  Serious: Yes (Other)
  Sender: FDA-Public Use
  Company Number: US-ACCORD-061787

PATIENT
  Age: 67 Year
  Sex: Female
  Weight: 92.99 kg

DRUGS (19)
  1. DEXAMETHASONE. [Concomitant]
     Active Substance: DEXAMETHASONE
     Route: 042
  2. DULOXETINE. [Concomitant]
     Active Substance: DULOXETINE
     Dosage: TAKE 2 CAPSULE 2 TIMES EVERY DAY
     Route: 048
  3. EFFIENT [Concomitant]
     Active Substance: PRASUGREL HYDROCHLORIDE
     Route: 048
  4. CARVEDILOL/CARVEDILOL HYDROCHLODRIDE [Concomitant]
     Dates: start: 20010101
  5. ALOXI [Concomitant]
     Active Substance: PALONOSETRON HYDROCHLORIDE
     Route: 042
  6. FISH OIL [Concomitant]
     Active Substance: FISH OIL
  7. RAMIPRIL. [Concomitant]
     Active Substance: RAMIPRIL
  8. COREG [Concomitant]
     Active Substance: CARVEDILOL
     Route: 048
  9. ASPIRIN LOW DOSE 81 MG [Concomitant]
  10. NIASPAN [Concomitant]
     Active Substance: NIACIN
     Dosage: TAKE 1 TABLET 2 TIMES EVERY DAY AT BEDTIME AFTER A LOW?FAT SNACK
  11. LOVASTATIN. [Concomitant]
     Active Substance: LOVASTATIN
     Route: 048
  12. NEULASTA [Concomitant]
     Active Substance: PEGFILGRASTIM
     Route: 058
  13. ARIMIDEX [Concomitant]
     Active Substance: ANASTROZOLE
     Route: 048
  14. CYMBALTA [Concomitant]
     Active Substance: DULOXETINE HYDROCHLORIDE
     Dosage: WITH FOOD
     Route: 048
  15. ZETIA [Concomitant]
     Active Substance: EZETIMIBE
     Dosage: STRENGTH: 10 MG
  16. CYCLOPHOSPHAMIDE. [Suspect]
     Active Substance: CYCLOPHOSPHAMIDE
     Indication: INVASIVE DUCTAL BREAST CARCINOMA
     Dosage: EVERY THREE WEEK
     Route: 042
     Dates: start: 20140105, end: 20140814
  17. BENADRYL [Concomitant]
     Active Substance: DIPHENHYDRAMINE HYDROCHLORIDE
     Route: 042
  18. DOCETAXEL ACCORD [Suspect]
     Active Substance: DOCETAXEL
     Indication: INVASIVE DUCTAL BREAST CARCINOMA
     Dosage: EVERY THREE WEEKS
     Dates: start: 20140105, end: 20140814
  19. SYNTHROID [Concomitant]
     Active Substance: LEVOTHYROXINE SODIUM
     Route: 048

REACTIONS (1)
  - Alopecia [Not Recovered/Not Resolved]

NARRATIVE: CASE EVENT DATE: 20140601
